FAERS Safety Report 12949267 (Version 1)
Quarter: 2016Q4

REPORT INFORMATION
  Report Type: Spontaneous
  Country: US (occurrence: US)
  Receive Date: 20161116
  Receipt Date: 20161116
  Transmission Date: 20170207
  Serious: Yes (Other)
  Sender: FDA-Public Use
  Company Number: US-ALLERGAN-1673099US

PATIENT
  Sex: Female

DRUGS (1)
  1. SAPHRIS [Suspect]
     Active Substance: ASENAPINE MALEATE
     Indication: PRODUCT USED FOR UNKNOWN INDICATION

REACTIONS (4)
  - Gastritis erosive [Unknown]
  - Oesophageal ulcer [Unknown]
  - Obsessive-compulsive disorder [Unknown]
  - Drug ineffective [Unknown]
